FAERS Safety Report 6300976-1 (Version None)
Quarter: 2009Q3

REPORT INFORMATION
  Report Type: 
  Country: None (occurrence: None)
  Receive Date: 20090806
  Receipt Date: 20090806
  Transmission Date: 20100115
  Serious: Yes (Hospitalization)
  Sender: FDA-Public Use
  Company Number: None

PATIENT
  Age: 66 Year
  Sex: Female
  Weight: 98.6 kg

DRUGS (10)
  1. SPRING VALLEY VITAMIN E 12,000 IU SKIN OIL 12,000 IU PHARMAVITE LLC [Suspect]
     Indication: SCAR
     Dosage: TWICE DAILYT, TOPICAL
     Route: 061
     Dates: start: 20090623, end: 20090626
  2. DETROL LA (TOLTERODINE TARTRATE) [Concomitant]
  3. PREVACID [Concomitant]
  4. FUROSEMIDE [Concomitant]
  5. SYNTHROID [Concomitant]
  6. EFFEXOR XR [Concomitant]
  7. METFORMIN HCL [Concomitant]
  8. JANUVIA (SITAGLIPTIN) [Concomitant]
  9. COZAAR [Concomitant]
  10. SIMVASTATIN [Concomitant]

REACTIONS (8)
  - APPLICATION SITE PRURITUS [None]
  - APPLICATION SITE RASH [None]
  - APPLICATION SITE SWELLING [None]
  - INFECTION [None]
  - NAUSEA [None]
  - PRURITUS [None]
  - RASH [None]
  - VOMITING [None]
